FAERS Safety Report 23691310 (Version 1)
Quarter: 2024Q2

REPORT INFORMATION
  Report Type: Spontaneous
  Country: US (occurrence: US)
  Receive Date: 20240401
  Receipt Date: 20240401
  Transmission Date: 20240715
  Serious: No
  Sender: FDA-Public Use
  Company Number: US-002147023-NVSC2024US069120

PATIENT
  Sex: Female

DRUGS (1)
  1. LEQVIO [Suspect]
     Active Substance: INCLISIRAN SODIUM
     Indication: Low density lipoprotein increased
     Dosage: 284 MG/KG (1 SUBCUTANEOUS INJECTION)
     Route: 058
     Dates: start: 20240301

REACTIONS (1)
  - Injection site haematoma [Recovered/Resolved]

NARRATIVE: CASE EVENT DATE: 20240301
